FAERS Safety Report 7362295-4 (Version None)
Quarter: 2011Q1

REPORT INFORMATION
  Report Type: 
  Country: None (occurrence: None)
  Receive Date: 20110318
  Receipt Date: 20110308
  Transmission Date: 20110831
  Serious: Yes (Hospitalization)
  Sender: FDA-Public Use
  Company Number: US-JNJFOC-20080301004

PATIENT
  Sex: Female
  Weight: 40 kg

DRUGS (3)
  1. HUMIRA [Concomitant]
  2. METHOTREXATE [Concomitant]
  3. INFLIXIMAB [Suspect]
     Indication: CROHN'S DISEASE
     Dosage: TOTAL 4 DOSES
     Route: 042

REACTIONS (2)
  - GASTROENTERITIS VIRAL [None]
  - OBSTRUCTION [None]
